FAERS Safety Report 24198519 (Version 1)
Quarter: 2024Q3

REPORT INFORMATION
  Report Type: Spontaneous
  Country: US (occurrence: US)
  Receive Date: 20240812
  Receipt Date: 20240812
  Transmission Date: 20241016
  Serious: No
  Sender: TARO
  Company Number: US-TARO PHARMACEUTICALS USA INC.-2023TAR00902

PATIENT

DRUGS (2)
  1. WARFARIN [Suspect]
     Active Substance: WARFARIN
     Indication: International normalised ratio fluctuation
     Dosage: 3 MG, OD
     Route: 048
     Dates: start: 20230503
  2. WARFARIN [Suspect]
     Active Substance: WARFARIN
     Dosage: 3 MG, OD
     Route: 048
     Dates: start: 20230802

REACTIONS (2)
  - International normalised ratio increased [Recovered/Resolved]
  - Product commingling [Unknown]
